FAERS Safety Report 5765500-0 (Version None)
Quarter: 2008Q2

REPORT INFORMATION
  Report Type: 
  Country: None (occurrence: None)
  Receive Date: 20080611
  Receipt Date: 20080605
  Transmission Date: 20081010
  Serious: Yes (Other)
  Sender: FDA-Public Use
  Company Number: B0524507A

PATIENT
  Sex: Male

DRUGS (11)
  1. FLIXONASE [Suspect]
     Indication: DRUG USE FOR UNKNOWN INDICATION
     Route: 065
  2. INSULIN [Concomitant]
     Route: 065
  3. OMEPRAZOLE [Concomitant]
     Route: 065
  4. BISOPROLOL FUMARATE [Concomitant]
     Route: 065
  5. SALICYLIC ACID [Concomitant]
     Route: 065
  6. PERSANTINE [Concomitant]
     Route: 065
  7. HYDROKININE [Concomitant]
     Route: 065
  8. DIOVAN [Concomitant]
     Route: 065
  9. PLAVIX [Concomitant]
     Route: 065
  10. LESCOL [Concomitant]
     Route: 065
  11. SALOFALK [Concomitant]
     Route: 065

REACTIONS (1)
  - COLITIS ULCERATIVE [None]
